FAERS Safety Report 25748546 (Version 2)
Quarter: 2025Q3

REPORT INFORMATION
  Report Type: Report from Study
  Country: CO (occurrence: CO)
  Receive Date: 20250902
  Receipt Date: 20250917
  Transmission Date: 20251021
  Serious: Yes (Hospitalization)
  Sender: JOHNSON AND JOHNSON
  Company Number: CO-JNJFOC-20250833853

PATIENT
  Age: 71 Year
  Sex: Female
  Weight: 54 kg

DRUGS (1)
  1. SIMPONI [Suspect]
     Active Substance: GOLIMUMAB
     Indication: Rheumatoid arthritis
     Route: 058
     Dates: start: 20250703

REACTIONS (4)
  - Influenza [Unknown]
  - Chest pain [Unknown]
  - Catheter placement [Unknown]
  - Off label use [Unknown]

NARRATIVE: CASE EVENT DATE: 20250804
